FAERS Safety Report 18847174 (Version 1)
Quarter: 2021Q1

REPORT INFORMATION
  Report Type: Report from Study
  Country: US (occurrence: US)
  Receive Date: 20210203
  Receipt Date: 20210203
  Transmission Date: 20210419
  Serious: No
  Sender: FDA-Public Use
  Company Number: US-EXELIXIS-CABO-20033589

PATIENT
  Age: 62 Year
  Sex: Female

DRUGS (2)
  1. CABOMETYX [Suspect]
     Active Substance: CABOZANTINIB S-MALATE
     Indication: RENAL CANCER
     Dosage: 40 MG, QD
     Route: 048
     Dates: end: 20201105
  2. CABOMETYX [Suspect]
     Active Substance: CABOZANTINIB S-MALATE
     Dosage: 20 MG, QD
     Route: 048
     Dates: start: 20201112

REACTIONS (31)
  - Skin exfoliation [Unknown]
  - Tearfulness [Unknown]
  - Contusion [Unknown]
  - Hair colour changes [Unknown]
  - Blood pressure increased [Unknown]
  - Weight decreased [Unknown]
  - Dizziness [Unknown]
  - Loss of consciousness [Unknown]
  - Dry mouth [Unknown]
  - Malaise [Recovering/Resolving]
  - Neck pain [Unknown]
  - Headache [Unknown]
  - Myalgia [Unknown]
  - Tooth disorder [Unknown]
  - Skin discolouration [Unknown]
  - Genital ulceration [Unknown]
  - Decreased appetite [Recovering/Resolving]
  - Hunger [Unknown]
  - Dysphagia [Unknown]
  - Oral discomfort [Unknown]
  - Gingival pain [Unknown]
  - Dysgeusia [Not Recovered/Not Resolved]
  - Pain [Unknown]
  - Eating disorder [Unknown]
  - Dysphonia [Unknown]
  - Faeces soft [Unknown]
  - Mobility decreased [Unknown]
  - Fibromyalgia [Unknown]
  - Thinking abnormal [Unknown]
  - Dry skin [Unknown]
  - Nausea [Not Recovered/Not Resolved]

NARRATIVE: CASE EVENT DATE: 20201026
